FAERS Safety Report 12971546 (Version 1)
Quarter: 2016Q4

REPORT INFORMATION
  Report Type: Spontaneous
  Country: US (occurrence: US)
  Receive Date: 20161123
  Receipt Date: 20161123
  Transmission Date: 20170207
  Serious: No
  Sender: FDA-Public Use
  Company Number: US-JAZZ-2016-US-020102

PATIENT
  Age: 29 Year
  Sex: Female

DRUGS (20)
  1. TOPAMAX [Concomitant]
     Active Substance: TOPIRAMATE
  2. ZOFRAN [Concomitant]
     Active Substance: ONDANSETRON HYDROCHLORIDE
  3. IBUPROFEN. [Concomitant]
     Active Substance: IBUPROFEN
  4. MARIJUANA [Concomitant]
     Active Substance: CANNABIS SATIVA SUBSP. INDICA TOP
  5. NORETHINDRONE                      /00044901/ [Concomitant]
     Active Substance: NORETHINDRONE
  6. NUVIGIL [Concomitant]
     Active Substance: ARMODAFINIL
  7. PROVIGIL [Concomitant]
     Active Substance: MODAFINIL
  8. BEPREVE [Concomitant]
     Active Substance: BEPOTASTINE BESILATE
  9. XYREM [Suspect]
     Active Substance: SODIUM OXYBATE
     Indication: NARCOLEPSY
     Dosage: 2.25 G, BID
     Route: 048
     Dates: start: 20161011, end: 20161011
  10. DYMISTA [Concomitant]
     Active Substance: AZELASTINE HYDROCHLORIDE\FLUTICASONE PROPIONATE
  11. MULTIVITAMINS                      /07504101/ [Concomitant]
  12. EPIPEN [Concomitant]
     Active Substance: EPINEPHRINE
  13. XOLAIR [Concomitant]
     Active Substance: OMALIZUMAB
  14. CLARITIN [Concomitant]
     Active Substance: LORATADINE
  15. OXYCODONE [Concomitant]
     Active Substance: OXYCODONE
  16. DEXILANT [Concomitant]
     Active Substance: DEXLANSOPRAZOLE
  17. DULERA [Concomitant]
     Active Substance: FORMOTEROL FUMARATE DIHYDRATE\MOMETASONE FUROATE
  18. VYVANSE [Concomitant]
     Active Substance: LISDEXAMFETAMINE DIMESYLATE
  19. VENTOLIN [Concomitant]
     Active Substance: ALBUTEROL SULFATE
  20. SINGULAIR [Concomitant]
     Active Substance: MONTELUKAST SODIUM

REACTIONS (5)
  - Throat tightness [Unknown]
  - Pruritus [Unknown]
  - Dysphagia [Unknown]
  - Tachycardia [Recovered/Resolved]
  - Chest discomfort [Unknown]

NARRATIVE: CASE EVENT DATE: 20161011
